FAERS Safety Report 18498634 (Version 1)
Quarter: 2020Q4

REPORT INFORMATION
  Report Type: Spontaneous
  Country: US (occurrence: US)
  Receive Date: 20201112
  Receipt Date: 20201112
  Transmission Date: 20210114
  Serious: Yes (Death, Other)
  Sender: FDA-Public Use
  Company Number: US-PURDUE-USA-2020-0173572

PATIENT
  Age: 30 Year
  Sex: Female

DRUGS (3)
  1. FENTANYL. [Suspect]
     Active Substance: FENTANYL
     Indication: PRODUCT USED FOR UNKNOWN INDICATION
     Dosage: UNK
     Route: 065
  2. OXYCONTIN [Suspect]
     Active Substance: OXYCODONE HYDROCHLORIDE
     Indication: BACK INJURY
     Dosage: UNK
     Route: 048
  3. ALPRAZOLAM. [Suspect]
     Active Substance: ALPRAZOLAM
     Indication: PRODUCT USED FOR UNKNOWN INDICATION
     Dosage: UNK
     Route: 065

REACTIONS (11)
  - Toxicity to various agents [Fatal]
  - Mental disorder [Unknown]
  - Bipolar disorder [Unknown]
  - Mood swings [Unknown]
  - Road traffic accident [Unknown]
  - Injury [Unknown]
  - Depression [Unknown]
  - Overdose [Unknown]
  - Pain [Unknown]
  - General physical condition abnormal [Unknown]
  - Drug dependence [Unknown]

NARRATIVE: CASE EVENT DATE: 20170917
